FAERS Safety Report 24723497 (Version 2)
Quarter: 2024Q4

REPORT INFORMATION
  Report Type: Spontaneous
  Country: US (occurrence: US)
  Receive Date: 20241211
  Receipt Date: 20241223
  Transmission Date: 20250115
  Serious: No
  Sender: SANOFI AVENTIS
  Company Number: US-SA-2024SA365268

PATIENT
  Age: 63 Year
  Sex: Female

DRUGS (7)
  1. KEVZARA [Suspect]
     Active Substance: SARILUMAB
     Indication: Polymyalgia rheumatica
     Dosage: 200 MG, QOW
     Route: 058
     Dates: start: 20240828, end: 2024
  2. ACYCLOVIR [Concomitant]
     Active Substance: ACYCLOVIR
     Dosage: UNK
  3. ALEVE [Concomitant]
     Active Substance: NAPROXEN SODIUM
  4. IBUPROFEN [Concomitant]
     Active Substance: IBUPROFEN
  5. CALCIUM [Concomitant]
     Active Substance: CALCIUM
  6. VITAMIN D2 [Concomitant]
     Active Substance: ERGOCALCIFEROL
  7. PREDNISONE [Concomitant]
     Active Substance: PREDNISONE

REACTIONS (5)
  - Hypoaesthesia [Recovering/Resolving]
  - Headache [Recovering/Resolving]
  - Muscle twitching [Recovering/Resolving]
  - Pain in extremity [Recovering/Resolving]
  - Rash [Recovering/Resolving]

NARRATIVE: CASE EVENT DATE: 20240101
